FAERS Safety Report 7450462-0 (Version None)
Quarter: 2011Q2

REPORT INFORMATION
  Report Type: 
  Country: None (occurrence: None)
  Receive Date: 20110502
  Receipt Date: 20110419
  Transmission Date: 20111010
  Serious: Yes (Other)
  Sender: FDA-Public Use
  Company Number: PHHY2011CA04637

PATIENT
  Sex: Female

DRUGS (1)
  1. ACLASTA [Suspect]
     Indication: OSTEOPOROSIS
     Dosage: 5 MG, UNK
     Route: 042
     Dates: start: 20110105

REACTIONS (13)
  - CHAPPED LIPS [None]
  - DIARRHOEA [None]
  - JOINT LOCK [None]
  - APHTHOUS STOMATITIS [None]
  - ARTHRALGIA [None]
  - FATIGUE [None]
  - PAIN IN EXTREMITY [None]
  - LIP PAIN [None]
  - MALAISE [None]
  - NECK PAIN [None]
  - BACK PAIN [None]
  - PYREXIA [None]
  - NO THERAPEUTIC RESPONSE [None]
